FAERS Safety Report 5560536-7 (Version None)
Quarter: 2007Q4

REPORT INFORMATION
  Report Type: 
  Country: None (occurrence: None)
  Receive Date: 20071215
  Receipt Date: 20071108
  Transmission Date: 20080405
  Serious: No
  Sender: FDA-Public Use
  Company Number: US-ABBOTT-07P-163-0424874-00

PATIENT
  Sex: Male
  Weight: 93.07 kg

DRUGS (3)
  1. HUMIRA [Suspect]
     Indication: RHEUMATOID ARTHRITIS
     Route: 058
     Dates: start: 20070501, end: 20070901
  2. HUMIRA [Suspect]
     Route: 058
     Dates: start: 20071001
  3. NARCO [Concomitant]
     Indication: PAIN
     Dosage: UNIT DOSE:  10/325 MILLIGRAMS
     Route: 048
     Dates: start: 20060101

REACTIONS (1)
  - HERPES ZOSTER [None]
